FAERS Safety Report 10456828 (Version 1)
Quarter: 2014Q3

REPORT INFORMATION
  Report Type: Spontaneous
  Country: DE (occurrence: None)
  Receive Date: 20140912
  Receipt Date: 20140912
  Transmission Date: 20150326
  Serious: Yes (Hospitalization)
  Sender: FDA-Public Use
  Company Number: TTX201200041

PATIENT
  Sex: Female

DRUGS (15)
  1. VINCRISTINE SULFATE LIPOSOME (VINCRISTINE SULFATE LIPOSOME 2.25 MG/M2) INJECTION, 0.16MG/ML [Suspect]
     Active Substance: VINCRISTINE SULFATE
     Indication: NON-HODGKIN^S LYMPHOMA
     Dosage: EVERY 14 DAYS
     Route: 042
     Dates: start: 20120626
  2. PEGFILGRASTIM [Concomitant]
     Active Substance: PEGFILGRASTIM
  3. TIOTROPIUM BROMIDE [Concomitant]
     Active Substance: TIOTROPIUM BROMIDE
  4. KALIUM [Concomitant]
     Active Substance: POTASSIUM CHLORIDE
  5. FUROSEMID [Concomitant]
     Active Substance: FUROSEMIDE
  6. PREDNISOLONE (PREDNISOLONE ACETATE) [Suspect]
     Active Substance: PREDNISOLONE ACETATE
     Indication: NON-HODGKIN^S LYMPHOMA
     Dates: start: 20120810, end: 20120815
  7. EUGALAC (LACTULOSE) [Concomitant]
  8. MCP TROPFEN (METROCLOPRAMIDE HYDROCHLORIDE) [Concomitant]
  9. ONDANSETRON [Concomitant]
     Active Substance: ONDANSETRON
  10. LEVOFLOXACIN [Concomitant]
     Active Substance: LEVOFLOXACIN
  11. CYCLOPHOSPHAMIDE (CYCLOPHOSPHAMIDE) [Suspect]
     Active Substance: CYCLOPHOSPHAMIDE
     Indication: NON-HODGKIN^S LYMPHOMA
     Route: 042
     Dates: start: 20120811, end: 20120811
  12. PEGFILGRASTIM [Concomitant]
     Active Substance: PEGFILGRASTIM
  13. RITUXIMAB (RITUXIMAB) [Suspect]
     Active Substance: RITUXIMAB
     Indication: NON-HODGKIN^S LYMPHOMA
     Route: 042
     Dates: start: 20120810, end: 20120810
  14. DOXORUBICIN [Suspect]
     Active Substance: DOXORUBICIN
     Indication: NON-HODGKIN^S LYMPHOMA
     Route: 042
     Dates: start: 20120811, end: 20120811
  15. ESOMEPRAZOLE [Concomitant]
     Active Substance: ESOMEPRAZOLE

REACTIONS (2)
  - Atypical pneumonia [None]
  - Urinary tract infection [None]

NARRATIVE: CASE EVENT DATE: 20120822
